FAERS Safety Report 6938190-9 (Version None)
Quarter: 2010Q3

REPORT INFORMATION
  Report Type: 
  Country: None (occurrence: None)
  Receive Date: 20100817
  Receipt Date: 20100805
  Transmission Date: 20110219
  Serious: Yes (Hospitalization)
  Sender: FDA-Public Use
  Company Number: ENTC2010-0115

PATIENT
  Age: 65 Year
  Sex: Male

DRUGS (5)
  1. STALEVO 100 [Suspect]
     Indication: PARKINSON'S DISEASE
     Dosage: 50/12.5/200 MH X2
     Dates: start: 20091109, end: 20100118
  2. SINEMET [Suspect]
     Indication: PARKINSON'S DISEASE
     Dosage: 50/12.5 MG
     Dates: start: 20080526
  3. NOVAMINSULFON [Concomitant]
  4. TRAMAL [Concomitant]
  5. ZALDIAR [Concomitant]

REACTIONS (2)
  - HALLUCINATION, VISUAL [None]
  - RESTLESSNESS [None]
